FAERS Safety Report 23778911 (Version 6)
Quarter: 2025Q1

REPORT INFORMATION
  Report Type: Report from Study
  Country: US (occurrence: US)
  Receive Date: 20240424
  Receipt Date: 20250327
  Transmission Date: 20250409
  Serious: Yes (Life-Threatening, Hospitalization, Other)
  Sender: SANOFI AVENTIS
  Company Number: US-SA-SAC20230426000294

PATIENT
  Age: 72 Year
  Sex: Female
  Weight: 70.7 kg

DRUGS (46)
  1. BELUMOSUDIL MESYLATE [Suspect]
     Active Substance: BELUMOSUDIL MESYLATE
     Indication: Chronic graft versus host disease
     Dosage: 200 MG, QD
     Route: 048
  2. BELUMOSUDIL MESYLATE [Suspect]
     Active Substance: BELUMOSUDIL MESYLATE
     Dosage: 200 MG, BID
     Route: 048
     Dates: start: 202209
  3. ACYCLOVIR [Concomitant]
     Active Substance: ACYCLOVIR
  4. ADVAIR HFA [Concomitant]
     Active Substance: FLUTICASONE PROPIONATE\SALMETEROL XINAFOATE
     Route: 055
  5. ADVAIR HFA [Concomitant]
     Active Substance: FLUTICASONE PROPIONATE\SALMETEROL XINAFOATE
  6. AMITRIPTYLINE [Concomitant]
     Active Substance: AMITRIPTYLINE
  7. AMITRIPTYLINE [Concomitant]
     Active Substance: AMITRIPTYLINE
  8. ASPIRIN [Concomitant]
     Active Substance: ASPIRIN
  9. CARVEDILOL [Concomitant]
     Active Substance: CARVEDILOL
  10. CARVEDILOL [Concomitant]
     Active Substance: CARVEDILOL
  11. CLOBETASOL [Concomitant]
     Active Substance: CLOBETASOL
  12. ERYTHROCIN STEARATE [Concomitant]
     Active Substance: ERYTHROMYCIN STEARATE
  13. ESCITALOPRAM [Concomitant]
     Active Substance: ESCITALOPRAM OXALATE
  14. GABAPENTIN [Concomitant]
     Active Substance: GABAPENTIN
  15. FOLIC ACID [Concomitant]
     Active Substance: FOLIC ACID
  16. HYDROXYZINE [Concomitant]
     Active Substance: HYDROXYZINE HYDROCHLORIDE
  17. JAKAFI [Concomitant]
     Active Substance: RUXOLITINIB
  18. LISINOPRIL [Concomitant]
     Active Substance: LISINOPRIL
  19. LOPERAMIDE [Concomitant]
     Active Substance: LOPERAMIDE
  20. METFORMIN [Concomitant]
     Active Substance: METFORMIN HYDROCHLORIDE
  21. MONTELUKAST [Concomitant]
     Active Substance: MONTELUKAST
  22. ONDANSETRON [Concomitant]
     Active Substance: ONDANSETRON
  23. PENTAMIDINE [Concomitant]
     Active Substance: PENTAMIDINE
  24. PRAVASTATIN [Concomitant]
     Active Substance: PRAVASTATIN
  25. PROCHLORPERAZINE [Concomitant]
     Active Substance: PROCHLORPERAZINE
  26. RESTASIS [Concomitant]
     Active Substance: CYCLOSPORINE
  27. OMEPRAZOLE [Concomitant]
     Active Substance: OMEPRAZOLE
  28. TACROLIMUS [Concomitant]
     Active Substance: TACROLIMUS
  29. FAMOTIDINE [Concomitant]
     Active Substance: FAMOTIDINE
  30. MAGNESIUM [Concomitant]
     Active Substance: MAGNESIUM
  31. VORICONAZOLE [Concomitant]
     Active Substance: VORICONAZOLE
  32. SIMULECT [Concomitant]
     Active Substance: BASILIXIMAB
     Route: 042
  33. SPIRIVA RESPIMAT [Concomitant]
     Active Substance: TIOTROPIUM BROMIDE
     Route: 055
  34. TRAMADOL HYDROCHLORIDE [Concomitant]
     Active Substance: TRAMADOL HYDROCHLORIDE
  35. VITAMIN D3 [Concomitant]
     Active Substance: CHOLECALCIFEROL
  36. CLOBETASOL PROPIONATE [Concomitant]
     Active Substance: CLOBETASOL PROPIONATE
  37. ASPIRIN [Concomitant]
     Active Substance: ASPIRIN
  38. LASIX [Concomitant]
     Active Substance: FUROSEMIDE
  39. IMBRUVICA [Concomitant]
     Active Substance: IBRUTINIB
  40. PREDNISONE [Concomitant]
     Active Substance: PREDNISONE
  41. ACYCLOVIR [Concomitant]
     Active Substance: ACYCLOVIR
  42. ACYCLOVIR [Concomitant]
     Active Substance: ACYCLOVIR
  43. VOLTAREN XR [Concomitant]
     Active Substance: DICLOFENAC SODIUM
     Route: 061
  44. HYDROXYZINE PAMOATE [Concomitant]
     Active Substance: HYDROXYZINE PAMOATE
  45. ORENCIA [Concomitant]
     Active Substance: ABATACEPT
  46. URSODIOL [Concomitant]
     Active Substance: URSODIOL

REACTIONS (13)
  - Pulmonary oedema [Unknown]
  - Asthenia [Unknown]
  - Hepatic enzyme increased [Unknown]
  - Cataract [Unknown]
  - Back injury [Unknown]
  - COVID-19 pneumonia [Unknown]
  - Limb discomfort [Recovering/Resolving]
  - Fatigue [Not Recovered/Not Resolved]
  - Eye disorder [Unknown]
  - Fall [Unknown]
  - Dysstasia [Unknown]
  - Gait disturbance [Unknown]
  - Liver disorder [Unknown]

NARRATIVE: CASE EVENT DATE: 20230101
